FAERS Safety Report 23784836 (Version 1)
Quarter: 2024Q2

REPORT INFORMATION
  Report Type: Spontaneous
  Country: CN (occurrence: CN)
  Receive Date: 20240425
  Receipt Date: 20240425
  Transmission Date: 20240716
  Serious: Yes (Other)
  Sender: FDA-Public Use
  Company Number: CN-PFIZER INC-PV202400053476

PATIENT
  Age: 32 Year
  Sex: Female

DRUGS (1)
  1. CARBOPROST TROMETHAMINE [Suspect]
     Active Substance: CARBOPROST TROMETHAMINE
     Indication: Uterine hypotonus
     Dosage: 0.250 MG, 1X/DAY
     Route: 030
     Dates: start: 20240419, end: 20240419

REACTIONS (5)
  - Rash [Recovered/Resolved]
  - Hypertension [Recovered/Resolved]
  - Rash erythematous [Recovering/Resolving]
  - Chills [Recovering/Resolving]
  - Headache [Recovering/Resolving]

NARRATIVE: CASE EVENT DATE: 20240419
